FAERS Safety Report 4607790-3 (Version None)
Quarter: 2005Q1

REPORT INFORMATION
  Report Type: 
  Country: None (occurrence: None)
  Receive Date: 20050314
  Receipt Date: 20050303
  Transmission Date: 20050727
  Serious: Yes (Life-Threatening, Hospitalization)
  Sender: FDA-Public Use
  Company Number: CA-GLAXOSMITHKLINE-A0548264A

PATIENT
  Age: 58 Year
  Sex: Female
  Weight: 74 kg

DRUGS (4)
  1. TOSITUMOMAB [Suspect]
     Indication: NON-HODGKIN'S LYMPHOMA
     Route: 042
     Dates: start: 20050114, end: 20050114
  2. IODINE I 131 TOSITUMOMAB [Suspect]
     Indication: NON-HODGKIN'S LYMPHOMA
     Route: 042
     Dates: start: 20050114, end: 20050114
  3. TOSITUMOMAB [Suspect]
     Route: 042
     Dates: start: 20050127, end: 20050127
  4. IODINE I 131 TOSITUMOMAB [Suspect]
     Route: 042
     Dates: start: 20050127, end: 20050127

REACTIONS (2)
  - SMALL INTESTINAL OBSTRUCTION [None]
  - VOMITING [None]
